FAERS Safety Report 20570782 (Version 1)
Quarter: 2022Q1

REPORT INFORMATION
  Report Type: Spontaneous
  Country: US (occurrence: US)
  Receive Date: 20220309
  Receipt Date: 20220309
  Transmission Date: 20220423
  Serious: Yes (Other)
  Sender: FDA-Public Use
  Company Number: US-drreddys-SPO/USA/22/0147424

PATIENT
  Age: 15 Year
  Sex: Female

DRUGS (1)
  1. ZENATANE [Suspect]
     Active Substance: ISOTRETINOIN
     Indication: Product used for unknown indication
     Dosage: RMA ISSUE DATE:12 NOVEMBER 2021 05:51:53 PM, 28 DECEMBER 2021 02:55:09 PM, 26 JANUARY 2022 03:16:30

REACTIONS (1)
  - Spinal operation [Unknown]
